FAERS Safety Report 4613825-4 (Version None)
Quarter: 2005Q1

REPORT INFORMATION
  Report Type: 
  Country: None (occurrence: None)
  Receive Date: 20050315
  Receipt Date: 20040209
  Transmission Date: 20050727
  Serious: No
  Sender: FDA-Public Use
  Company Number: 7447

PATIENT
  Age: 61 Year
  Sex: Female

DRUGS (3)
  1. LEUCOVORIN [Suspect]
     Indication: NEOPLASM MALIGNANT
     Dosage: 15 MG
     Route: 048
     Dates: start: 20030211, end: 20030304
  2. TEGAFUR URACIL [Suspect]
     Indication: NEOPLASM MALIGNANT
     Dosage: 600 MG
     Dates: start: 20030211, end: 20030304
  3. TOPOTECAN [Suspect]
     Indication: NEOPLASM MALIGNANT
     Dosage: 180 MG
     Dates: start: 20030211, end: 20030301

REACTIONS (1)
  - NEUTROPHIL COUNT DECREASED [None]
